FAERS Safety Report 13020255 (Version 1)
Quarter: 2016Q4

REPORT INFORMATION
  Report Type: Spontaneous
  Country: US (occurrence: US)
  Receive Date: 20161212
  Receipt Date: 20161212
  Transmission Date: 20170207
  Serious: Yes (Other)
  Sender: FDA-Public Use
  Company Number: US-ELI_LILLY_AND_COMPANY-US201611010446

PATIENT
  Sex: Female

DRUGS (5)
  1. ZYPREXA ZYDIS [Suspect]
     Active Substance: OLANZAPINE
     Dosage: 50 MG, UNKNOWN
     Route: 065
  2. ZYPREXA ZYDIS [Suspect]
     Active Substance: OLANZAPINE
     Dosage: 15 MG, EACH MORNING
     Route: 065
  3. ZYPREXA ZYDIS [Suspect]
     Active Substance: OLANZAPINE
     Indication: SEDATIVE THERAPY
     Dosage: 5 MG, QD
     Route: 065
     Dates: start: 2012
  4. DIAZEPAM. [Concomitant]
     Active Substance: DIAZEPAM
     Dosage: UNK, UNKNOWN
     Route: 065
  5. ZYPREXA ZYDIS [Suspect]
     Active Substance: OLANZAPINE
     Dosage: 20 MG, EACH EVENING
     Route: 065

REACTIONS (12)
  - Weight increased [Unknown]
  - Generalised oedema [Unknown]
  - Insomnia [Unknown]
  - Prescribed overdose [Unknown]
  - Tardive dyskinesia [Unknown]
  - Pulmonary oedema [Unknown]
  - Muscle spasms [Unknown]
  - Transient ischaemic attack [Unknown]
  - Off label use [Unknown]
  - Dizziness [Unknown]
  - Tachycardia [Unknown]
  - Pain [Unknown]

NARRATIVE: CASE EVENT DATE: 2012
